FAERS Safety Report 8707792 (Version 2)
Quarter: 2012Q4

REPORT INFORMATION
  Report Type: 
  Country: US (occurrence: US)
  Receive Date: 20120806
  Receipt Date: 20120921
  Transmission Date: 20130627
  Serious: No
  Sender: FDA-Public Use
  Company Number: US-009507513-1208USA000420

PATIENT
  Age: 59 Year
  Sex: Female

DRUGS (4)
  1. PEGINTRON [Suspect]
     Indication: HEPATITIS C
     Dosage: 0.5 ml, qw
     Route: 058
  2. RIBASPHERE [Suspect]
  3. PROCRIT [Concomitant]
  4. NEUPOGEN [Concomitant]

REACTIONS (3)
  - Device malfunction [Unknown]
  - Fatigue [Unknown]
  - Underdose [Unknown]
